FAERS Safety Report 11247430 (Version 1)
Quarter: 2015Q3

REPORT INFORMATION
  Report Type: Spontaneous
  Country: JP (occurrence: JP)
  Receive Date: 20150708
  Receipt Date: 20150708
  Transmission Date: 20151125
  Serious: Yes (Other)
  Sender: FDA-Public Use
  Company Number: JP-JNJFOC-20150704423

PATIENT
  Age: 79 Year
  Sex: Male

DRUGS (8)
  1. LEVOCABASTINE HYDROCHLORIDE [Concomitant]
     Active Substance: LEVOCABASTINE HYDROCHLORIDE
     Route: 047
  2. XARELTO [Suspect]
     Active Substance: RIVAROXABAN
     Indication: ATRIAL FIBRILLATION
     Route: 048
     Dates: start: 201409, end: 20150616
  3. MOHRUS [Concomitant]
     Active Substance: KETOPROFEN
     Route: 062
  4. GASMOTIN [Concomitant]
     Active Substance: MOSAPRIDE CITRATE
     Route: 048
  5. XARELTO [Suspect]
     Active Substance: RIVAROXABAN
     Indication: CEREBROVASCULAR ACCIDENT PROPHYLAXIS
     Route: 048
     Dates: start: 201409, end: 20150616
  6. LENDORMIN [Concomitant]
     Active Substance: BROTIZOLAM
     Route: 048
  7. FLIVAS [Concomitant]
     Active Substance: NAFTOPIDIL
     Route: 048
  8. PARIET [Concomitant]
     Active Substance: RABEPRAZOLE SODIUM
     Route: 048

REACTIONS (1)
  - Cerebral infarction [Recovered/Resolved with Sequelae]

NARRATIVE: CASE EVENT DATE: 20150616
